FAERS Safety Report 19431987 (Version 1)
Quarter: 2021Q2

REPORT INFORMATION
  Report Type: Spontaneous
  Country: CN (occurrence: CN)
  Receive Date: 20210617
  Receipt Date: 20210617
  Transmission Date: 20210717
  Serious: Yes (Other)
  Sender: FDA-Public Use
  Company Number: CN-PFIZER INC-2021658629

PATIENT
  Age: 74 Year
  Sex: Male
  Weight: 50 kg

DRUGS (2)
  1. CYCLOPHOSPHAMIDE. [Concomitant]
     Active Substance: CYCLOPHOSPHAMIDE
     Indication: IMMUNOSUPPRESSION
     Dosage: 0.4 G
     Route: 041
  2. MEDROL [Suspect]
     Active Substance: METHYLPREDNISOLONE
     Indication: RENAL VASCULITIS
     Dosage: 24 MG, 1X/DAY
     Route: 048
     Dates: start: 20210401, end: 20210512

REACTIONS (2)
  - Off label use [Unknown]
  - Myelosuppression [Not Recovered/Not Resolved]

NARRATIVE: CASE EVENT DATE: 20210401
